FAERS Safety Report 6294130-X (Version None)
Quarter: 2009Q3

REPORT INFORMATION
  Report Type: 
  Country: None (occurrence: None)
  Receive Date: 20090803
  Receipt Date: 20081208
  Transmission Date: 20100115
  Serious: No
  Sender: FDA-Public Use
  Company Number: A0759585A

PATIENT
  Age: 43 Year
  Sex: Male

DRUGS (2)
  1. NICORETTE [Suspect]
     Dates: start: 20081203, end: 20081206
  2. NICORETTE (MINT) [Suspect]
     Dates: start: 20081203, end: 20081206

REACTIONS (2)
  - OEDEMA MOUTH [None]
  - SWELLING FACE [None]
